FAERS Safety Report 25283036 (Version 1)
Quarter: 2025Q2

REPORT INFORMATION
  Report Type: Report from Study
  Country: US (occurrence: US)
  Receive Date: 20250508
  Receipt Date: 20250508
  Transmission Date: 20250716
  Serious: Yes (Other)
  Sender: ABBVIE
  Company Number: US-ABBVIE-6271345

PATIENT
  Age: 63 Year
  Sex: Female

DRUGS (2)
  1. HUMIRA [Suspect]
     Active Substance: ADALIMUMAB
     Indication: Rheumatoid arthritis
     Dosage: DOSAGE: 40 MG/ML 40 MILLIGRAM/MILLILITERS
     Route: 058
     Dates: start: 20150101, end: 20241223
  2. HUMIRA [Suspect]
     Active Substance: ADALIMUMAB
     Route: 058
     Dates: start: 20250120, end: 202503

REACTIONS (1)
  - Mammoplasty [Recovered/Resolved]

NARRATIVE: CASE EVENT DATE: 20250106
